FAERS Safety Report 15136479 (Version 1)
Quarter: 2018Q3

REPORT INFORMATION
  Report Type: Spontaneous
  Country: US (occurrence: US)
  Receive Date: 20180712
  Receipt Date: 20180712
  Transmission Date: 20181010
  Serious: Yes (Other)
  Sender: FDA-Public Use
  Company Number: US-TEVA-2018-US-923288

PATIENT
  Sex: Male

DRUGS (14)
  1. CEFUROXIME. [Concomitant]
     Active Substance: CEFUROXIME
  2. LEXAPRO [Concomitant]
     Active Substance: ESCITALOPRAM OXALATE
  3. VITAMIN D3 [Concomitant]
     Active Substance: CHOLECALCIFEROL
  4. LISINOPRIL. [Concomitant]
     Active Substance: LISINOPRIL
  5. CLONAZEPAM. [Concomitant]
     Active Substance: CLONAZEPAM
     Route: 065
  6. FLOMAX [Concomitant]
     Active Substance: TAMSULOSIN HYDROCHLORIDE
  7. MYRBETRIQ [Concomitant]
     Active Substance: MIRABEGRON
  8. COPAXONE [Suspect]
     Active Substance: GLATIRAMER ACETATE
     Indication: MULTIPLE SCLEROSIS
     Dosage: 17.1429 MILLIGRAM DAILY; FORMULATION: PREFILLED SYRINGE ; FREQUENCY:MON,WED,FRI
     Route: 058
     Dates: start: 20180413
  9. CYCLOBENZAPR [Concomitant]
     Active Substance: CYCLOBENZAPRINE
  10. NEURONTIN [Concomitant]
     Active Substance: GABAPENTIN
  11. ACTONEL [Concomitant]
     Active Substance: RISEDRONATE SODIUM
     Route: 065
  12. EFFEXOR [Concomitant]
     Active Substance: VENLAFAXINE HYDROCHLORIDE
  13. IBUPROFEN. [Concomitant]
     Active Substance: IBUPROFEN
  14. TYLENOL [Concomitant]
     Active Substance: ACETAMINOPHEN

REACTIONS (2)
  - Neurogenic bladder [Not Recovered/Not Resolved]
  - Urinary tract infection [Not Recovered/Not Resolved]
